FAERS Safety Report 8573524-3 (Version None)
Quarter: 2012Q3

REPORT INFORMATION
  Report Type: 
  Country: None (occurrence: None)
  Receive Date: 20120806
  Receipt Date: 20120730
  Transmission Date: 20120928
  Serious: Yes (Other)
  Sender: FDA-Public Use
  Company Number: US-BAYER-2012-076753

PATIENT
  Age: 56 Year
  Sex: Female

DRUGS (1)
  1. GADAVIST [Suspect]
     Indication: NUCLEAR MAGNETIC RESONANCE IMAGING
     Dosage: UNK
     Dates: start: 20120727, end: 20120727

REACTIONS (10)
  - SWELLING [None]
  - ASTHENIA [None]
  - DIZZINESS [None]
  - BONE PAIN [None]
  - THROAT IRRITATION [None]
  - FATIGUE [None]
  - HEADACHE [None]
  - COUGH [None]
  - DISORIENTATION [None]
  - RASH MACULAR [None]
